FAERS Safety Report 22262404 (Version 1)
Quarter: 2023Q2

REPORT INFORMATION
  Report Type: Spontaneous
  Country: GB (occurrence: GB)
  Receive Date: 20230428
  Receipt Date: 20230428
  Transmission Date: 20230721
  Serious: Yes (Other)
  Sender: FDA-Public Use
  Company Number: GB-MHRA-MED-202302082028035270-WHPNF

PATIENT
  Age: 40 Year
  Sex: Female
  Weight: 94 kg

DRUGS (2)
  1. METHYLPREDNISOLONE [Suspect]
     Active Substance: METHYLPREDNISOLONE
     Indication: Migraine
     Dosage: UNKNOWN
     Route: 065
  2. LIDOCAINE [Suspect]
     Active Substance: LIDOCAINE
     Indication: Migraine
     Dosage: UNKNOWN
     Route: 065

REACTIONS (5)
  - Alopecia [Unknown]
  - Meningitis bacterial [Recovered/Resolved with Sequelae]
  - Off label use [Unknown]
  - Accidental exposure to product [Unknown]
  - Medication error [Unknown]

NARRATIVE: CASE EVENT DATE: 20220512
